FAERS Safety Report 17444938 (Version 1)
Quarter: 2020Q1

REPORT INFORMATION
  Report Type: Spontaneous
  Country: US (occurrence: US)
  Receive Date: 20200221
  Receipt Date: 20200221
  Transmission Date: 20200409
  Serious: Yes (Other)
  Sender: FDA-Public Use
  Company Number: US-TEVA-2020-US-1187537

PATIENT
  Age: 17 Year
  Sex: Female

DRUGS (1)
  1. TRI-SPRINTEC [Suspect]
     Active Substance: ETHINYL ESTRADIOL\NORGESTIMATE
     Indication: AMENORRHOEA
     Route: 065

REACTIONS (3)
  - Coeliac disease [Unknown]
  - Product prescribing error [Unknown]
  - Product use in unapproved indication [Unknown]
